FAERS Safety Report 12802084 (Version 1)
Quarter: 2016Q3

REPORT INFORMATION
  Report Type: Spontaneous
  Country: US (occurrence: US)
  Receive Date: 20160930
  Receipt Date: 20160930
  Transmission Date: 20161109
  Serious: Yes (Other)
  Sender: FDA-Public Use
  Company Number: None

PATIENT
  Age: 26 Year
  Sex: Female
  Weight: 65.25 kg

DRUGS (2)
  1. HYOSCYAMINE SULFATE TABLETS [Suspect]
     Active Substance: HYOSCYAMINE SULFATE
     Indication: GASTROINTESTINAL PAIN
     Route: 048
     Dates: start: 20140630, end: 20160918
  2. HYOSCYAMINE SULFATE TABLETS [Suspect]
     Active Substance: HYOSCYAMINE SULFATE
     Indication: IRRITABLE BOWEL SYNDROME
     Route: 048
     Dates: start: 20140630, end: 20160918

REACTIONS (7)
  - Exposure during breast feeding [None]
  - Initial insomnia [None]
  - Nervousness [None]
  - Dizziness [None]
  - Dry mouth [None]
  - Nocturia [None]
  - Maternal exposure during pregnancy [None]

NARRATIVE: CASE EVENT DATE: 20160824
